FAERS Safety Report 9848257 (Version 1)
Quarter: 2014Q1

REPORT INFORMATION
  Report Type: Spontaneous
  Country: US (occurrence: None)
  Receive Date: 20140123
  Receipt Date: 20140123
  Transmission Date: 20141002
  Serious: Yes (Life-Threatening, Hospitalization)
  Sender: FDA-Public Use
  Company Number: None

PATIENT
  Age: 79 Year
  Sex: Male
  Weight: 67.59 kg

DRUGS (10)
  1. VICTOZA [Suspect]
     Indication: DIABETES MELLITUS
     Route: 058
     Dates: start: 20121212, end: 20131203
  2. BYSTOLIC [Concomitant]
  3. LIPITOR [Concomitant]
  4. GLIPIZIDE [Concomitant]
  5. IMDUR [Concomitant]
  6. LOSARTAN [Concomitant]
  7. ASA [Concomitant]
  8. RANITIDINE [Concomitant]
  9. METFORMIN [Concomitant]
  10. CLOPIDOGREL [Concomitant]

REACTIONS (2)
  - Pancreatic carcinoma [None]
  - Bile duct cancer [None]
